FAERS Safety Report 4600158-5 (Version None)
Quarter: 2005Q1

REPORT INFORMATION
  Report Type: 
  Country: None (occurrence: None)
  Receive Date: 20050302
  Receipt Date: 20050302
  Transmission Date: 20050727
  Serious: Yes (Life-Threatening)
  Sender: FDA-Public Use
  Company Number: None

PATIENT
  Age: 27 Year
  Sex: Female
  Weight: 75.7507 kg

DRUGS (3)
  1. ISONIAZID [Suspect]
     Dosage: NOT DOCUMENTED
     Dates: start: 20040801, end: 20041215
  2. ASACOL [Concomitant]
  3. VIT B-6 [Concomitant]

REACTIONS (4)
  - HEPATIC NECROSIS [None]
  - HEPATITIS ACUTE [None]
  - HEPATOTOXICITY [None]
  - TREATMENT NONCOMPLIANCE [None]
